FAERS Safety Report 5405709-9 (Version None)
Quarter: 2007Q3

REPORT INFORMATION
  Report Type: 
  Country: None (occurrence: None)
  Receive Date: 20070801
  Receipt Date: 20070725
  Transmission Date: 20080115
  Serious: Yes (Life-Threatening, Other)
  Sender: FDA-Public Use
  Company Number: 163-20785-07071444

PATIENT
  Sex: Male

DRUGS (2)
  1. THALOMID [Suspect]
     Indication: PROSTATE CANCER
     Dosage: 100- 400MG, QD, ORAL
     Route: 048
  2. DEXAMETHASONE TAB [Suspect]
     Indication: PROSTATE CANCER
     Dosage: 0.75 MG, BID,

REACTIONS (29)
  - ALANINE AMINOTRANSFERASE ABNORMAL [None]
  - ASPARTATE AMINOTRANSFERASE ABNORMAL [None]
  - BLOOD ALKALINE PHOSPHATASE INCREASED [None]
  - BLOOD BILIRUBIN ABNORMAL [None]
  - BRADYCARDIA [None]
  - CONSTIPATION [None]
  - DEEP VEIN THROMBOSIS [None]
  - DIZZINESS [None]
  - DRUG TOXICITY [None]
  - EYE DISORDER [None]
  - FATIGUE [None]
  - INCREASED TENDENCY TO BRUISE [None]
  - IRRITABILITY [None]
  - LEUKOPENIA [None]
  - LIVER FUNCTION TEST ABNORMAL [None]
  - LUNG DISORDER [None]
  - NEUROPATHY [None]
  - NEUTROPENIA [None]
  - OEDEMA [None]
  - PAIN [None]
  - PERIPHERAL SENSORY NEUROPATHY [None]
  - PULMONARY EMBOLISM [None]
  - RESPIRATION ABNORMAL [None]
  - SKIN CANCER [None]
  - SKIN DISORDER [None]
  - THROMBOCYTOPENIA [None]
  - THROMBOSIS [None]
  - URETHRAL OBSTRUCTION [None]
  - URINARY TRACT DISORDER [None]
